FAERS Safety Report 7955422-9 (Version None)
Quarter: 2011Q4

REPORT INFORMATION
  Report Type: 
  Country: None (occurrence: None)
  Receive Date: 20111202
  Receipt Date: 20111122
  Transmission Date: 20120403
  Serious: Yes (Life-Threatening)
  Sender: FDA-Public Use
  Company Number: FR-ROCHE-1015792

PATIENT
  Sex: Female

DRUGS (9)
  1. DELURSAN [Concomitant]
     Route: 048
  2. PERINDOPRIL ERBUMINE [Concomitant]
     Route: 048
  3. TRAMADOL HCL [Concomitant]
     Indication: PAIN
     Route: 048
  4. MYCOPHENOLATE MOFETIL (CELLCEPT) [Suspect]
     Indication: PROPHYLAXIS AGAINST TRANSPLANT REJECTION
     Route: 048
     Dates: end: 20110921
  5. BACTRIM [Concomitant]
     Indication: INFECTION PROPHYLAXIS
     Route: 048
  6. PHENOXYMETHYL PENICILLIN [Concomitant]
     Indication: ANTIVIRAL PROPHYLAXIS
     Route: 048
  7. ACYCLOVIR [Concomitant]
     Indication: INFECTION PROPHYLAXIS
     Route: 048
  8. LYRICA [Concomitant]
     Indication: NEURALGIA
     Route: 048
  9. NEORAL [Concomitant]
     Indication: BONE MARROW TRANSPLANT
     Route: 048
     Dates: start: 20050828

REACTIONS (4)
  - SHOCK HAEMORRHAGIC [None]
  - GASTRIC ULCER [None]
  - MELAENA [None]
  - HAEMATEMESIS [None]
